FAERS Safety Report 16086293 (Version 1)
Quarter: 2019Q1

REPORT INFORMATION
  Report Type: Spontaneous
  Country: US (occurrence: US)
  Receive Date: 20190318
  Receipt Date: 20190318
  Transmission Date: 20190418
  Serious: No
  Sender: FDA-Public Use
  Company Number: US-BAUSCH-BL-2019-006348

PATIENT
  Age: 76 Year
  Sex: Male

DRUGS (1)
  1. CARBIDOPA. [Suspect]
     Active Substance: CARBIDOPA
     Indication: PRODUCT USED FOR UNKNOWN INDICATION
     Route: 065

REACTIONS (4)
  - Breath odour [Unknown]
  - Decreased appetite [Unknown]
  - Dry mouth [Unknown]
  - Dysgeusia [Unknown]
